FAERS Safety Report 9669628 (Version 1)
Quarter: 2013Q4

REPORT INFORMATION
  Report Type: Spontaneous
  Country: NL (occurrence: None)
  Receive Date: 20131101
  Receipt Date: 20131101
  Transmission Date: 20140711
  Serious: Yes (Hospitalization)
  Sender: FDA-Public Use
  Company Number: 2013AP009418

PATIENT
  Age: 83 Year
  Sex: Female

DRUGS (6)
  1. CITALOPRAM(CITALOPRAM) [Suspect]
     Indication: DEPRESSION
  2. CARBASALATE CALCIUM [Concomitant]
  3. CARBAMAZEPINE (CARBAMAZEPINE) [Concomitant]
  4. LEVETIRACETAM (LEVETIRACETAM) [Concomitant]
  5. CALCIUM CARBONATE (CALCIUM CARBONATE) [Concomitant]
  6. ALENDRONATE (ALENDRONATE SODIUM) [Concomitant]

REACTIONS (7)
  - Hepatotoxicity [None]
  - Fall [None]
  - Loss of consciousness [None]
  - Fatigue [None]
  - Confusional state [None]
  - Blood pressure increased [None]
  - Haemangioma of liver [None]
